FAERS Safety Report 6903791-0 (Version None)
Quarter: 2010Q3

REPORT INFORMATION
  Report Type: 
  Country: None (occurrence: None)
  Receive Date: 20100804
  Receipt Date: 20081128
  Transmission Date: 20110219
  Serious: No
  Sender: FDA-Public Use
  Company Number: US-PFIZER INC-2008101017

PATIENT
  Age: 77 Year
  Sex: Female
  Weight: 66.8 kg

DRUGS (4)
  1. LYRICA [Suspect]
     Indication: HERPES ZOSTER
     Dates: start: 20081124
  2. THYROID TAB [Concomitant]
  3. DARVOCET [Concomitant]
     Dates: start: 20081123
  4. VALTREX [Concomitant]

REACTIONS (1)
  - DIARRHOEA [None]
